FAERS Safety Report 5046641-2 (Version None)
Quarter: 2006Q2

REPORT INFORMATION
  Report Type: 
  Country: None (occurrence: None)
  Receive Date: 20060601
  Receipt Date: 20060322
  Transmission Date: 20061013
  Serious: No
  Sender: FDA-Public Use
  Company Number: 2006PV010707

PATIENT
  Age: 61 Year
  Sex: Female
  Weight: 84.8226 kg

DRUGS (2)
  1. BYETTA [Suspect]
     Indication: DIABETES MELLITUS NON-INSULIN-DEPENDENT
     Dosage: 5 MCG;BID;SC
     Route: 058
     Dates: start: 20060101
  2. ASPIRIN [Concomitant]

REACTIONS (2)
  - INJECTION SITE DISCOMFORT [None]
  - INJECTION SITE URTICARIA [None]
